FAERS Safety Report 26034729 (Version 1)
Quarter: 2025Q4

REPORT INFORMATION
  Report Type: Spontaneous
  Country: US (occurrence: US)
  Receive Date: 20251112
  Receipt Date: 20251112
  Transmission Date: 20260118
  Serious: No
  Sender: NOVARTIS
  Company Number: US-SANDOZ-SDZ2025US082741

PATIENT
  Sex: Male

DRUGS (2)
  1. ROSUVASTATIN [Suspect]
     Active Substance: ROSUVASTATIN
     Indication: Product used for unknown indication
     Dosage: UNK
     Route: 065
  2. LEQVIO [Suspect]
     Active Substance: INCLISIRAN SODIUM
     Indication: Blood cholesterol increased
     Dosage: UNK,EVERY 3 MONTHS AND THEN 6 MONTHS
     Route: 065
     Dates: start: 20251008

REACTIONS (6)
  - Muscle fatigue [Unknown]
  - Back pain [Unknown]
  - Nasopharyngitis [Unknown]
  - Injection site rash [Unknown]
  - Injection site discomfort [Unknown]
  - Arthralgia [Recovered/Resolved]
